FAERS Safety Report 8071476-6 (Version None)
Quarter: 2012Q1

REPORT INFORMATION
  Report Type: 
  Country: None (occurrence: None)
  Receive Date: 20120119
  Receipt Date: 20111031
  Transmission Date: 20120608
  Serious: Yes (Other)
  Sender: FDA-Public Use
  Company Number: 2011P1009964

PATIENT

DRUGS (1)
  1. ENALAPRIL MALEATE [Suspect]

REACTIONS (1)
  - HAEMOLYTIC ANAEMIA [None]
